FAERS Safety Report 7307321-3 (Version None)
Quarter: 2011Q1

REPORT INFORMATION
  Report Type: 
  Country: None (occurrence: None)
  Receive Date: 20110223
  Receipt Date: 20110217
  Transmission Date: 20110831
  Serious: Yes (Death)
  Sender: FDA-Public Use
  Company Number: US-US-EMD SERONO, INC.-7034529

PATIENT
  Sex: Female
  Weight: 36 kg

DRUGS (6)
  1. DURAGESIC-100 [Concomitant]
  2. BACLOFEN [Concomitant]
  3. NEURONTIN [Concomitant]
  4. TEGRETOL [Concomitant]
  5. LAMICTAL [Concomitant]
  6. REBIF [Suspect]
     Indication: MULTIPLE SCLEROSIS
     Route: 058
     Dates: start: 20060329

REACTIONS (4)
  - HEADACHE [None]
  - FEELING ABNORMAL [None]
  - DEATH [None]
  - FALL [None]
